FAERS Safety Report 9065515 (Version 1)
Quarter: 2013Q1

REPORT INFORMATION
  Report Type: Spontaneous
  Country: US (occurrence: US)
  Receive Date: 20130131
  Receipt Date: 20130131
  Transmission Date: 20140127
  Serious: No
  Sender: FDA-Public Use
  Company Number: US-ABBOTT-12P-163-1016837-00

PATIENT
  Age: 50 Year
  Sex: Female

DRUGS (1)
  1. HUMIRA [Suspect]
     Indication: PRODUCT USED FOR UNKNOWN INDICATION
     Dates: start: 20121121, end: 20121121

REACTIONS (3)
  - Injury associated with device [Recovered/Resolved]
  - Device malfunction [Not Recovered/Not Resolved]
  - Incorrect dose administered [Recovered/Resolved]
